FAERS Safety Report 8480038-8 (Version None)
Quarter: 2012Q2

REPORT INFORMATION
  Report Type: 
  Country: None (occurrence: None)
  Receive Date: 20120629
  Receipt Date: 20120625
  Transmission Date: 20120825
  Serious: Yes (Death, Other)
  Sender: FDA-Public Use
  Company Number: US-ASTRAZENECA-2012SE25298

PATIENT
  Age: 65 Year
  Sex: Female
  Weight: 73 kg

DRUGS (15)
  1. FLAXSEED OIL [Concomitant]
     Dosage: 1200 MG, AS DIRECTED.
  2. NIACIN [Concomitant]
     Dosage: 500 MG AS DIRECTED
  3. LUTEIN [Concomitant]
     Dosage: 20 MG, AS DIRECTED.
  4. VITAMIN D [Concomitant]
     Dosage: 2000 UNITS, AS DIRECTED.
  5. CALCIUM D [Concomitant]
     Dosage: 600 200 MG UNIT ONCE A DAY
  6. GEMFIBROZIL [Concomitant]
  7. ASPIRIN [Concomitant]
  8. FISH OIL [Concomitant]
     Dosage: 1400 MG, AS DIRECTED.
  9. MULTI-VITAMINS [Concomitant]
     Dosage: AS DIRECTED
  10. CRESTOR [Suspect]
     Route: 048
  11. PLAVIX [Concomitant]
  12. CINNAMON [Concomitant]
     Dosage: 500 MG, AS DIRECTED.
  13. LEXAPRO [Concomitant]
  14. ESTER C [Concomitant]
     Dosage: 1000-50 MG AS DIRECTED
  15. METOPROLOL TARTRATE [Concomitant]
     Route: 048

REACTIONS (11)
  - CAROTID BRUIT [None]
  - CHRONIC OBSTRUCTIVE PULMONARY DISEASE [None]
  - MYOCARDIAL INFARCTION [None]
  - HYPERTENSION [None]
  - CHEST DISCOMFORT [None]
  - METABOLIC SYNDROME [None]
  - CORONARY ARTERY DISEASE [None]
  - ANXIETY [None]
  - CAROTID ARTERY DISEASE [None]
  - DEATH [None]
  - HYPERLIPIDAEMIA [None]
